FAERS Safety Report 9404233 (Version 2)
Quarter: 2013Q3

REPORT INFORMATION
  Report Type: Spontaneous
  Country: US (occurrence: None)
  Receive Date: 20130711
  Receipt Date: 20130722
  Transmission Date: 20140515
  Serious: Yes (Other)
  Sender: FDA-Public Use
  Company Number: FK201302340

PATIENT
  Age: 32 Year
  Sex: Female
  Weight: 53.07 kg

DRUGS (7)
  1. PROGESTERONE [Suspect]
     Indication: INFERTILITY
     Dosage: AM OR PM
     Route: 030
     Dates: start: 20130605, end: 20130616
  2. VITAMIN C [Concomitant]
  3. VITAMIN D (ERGOCALCIFEROL) [Concomitant]
  4. PRENATAL VITAMINS (PRENATAL VITAMINS /01549301/) [Concomitant]
  5. FOLIC ACID (FOLIC ACID) [Concomitant]
  6. PERI-COLACE (PERI-COLACE) [Concomitant]
  7. METFORMIN (METFORMIN) [Concomitant]

REACTIONS (5)
  - Adverse drug reaction [None]
  - Rash [None]
  - Erythema [None]
  - Blister [None]
  - Skin exfoliation [None]
